FAERS Safety Report 25278117 (Version 2)
Quarter: 2025Q3

REPORT INFORMATION
  Report Type: Report from Study
  Country: CA (occurrence: CA)
  Receive Date: 20250507
  Receipt Date: 20250911
  Transmission Date: 20251020
  Serious: Yes (Other)
  Sender: SAMSUNG BIOEPIS
  Company Number: CA-SAMSUNG BIOEPIS-SB-2025-15881

PATIENT
  Age: 15 Year
  Sex: Male
  Weight: 57 kg

DRUGS (4)
  1. RENFLEXIS [Suspect]
     Active Substance: INFLIXIMAB-ABDA
     Indication: Crohn^s disease
     Route: 042
     Dates: start: 20240725
  2. RENFLEXIS [Suspect]
     Active Substance: INFLIXIMAB-ABDA
     Route: 042
     Dates: start: 20240725
  3. RENFLEXIS [Suspect]
     Active Substance: INFLIXIMAB-ABDA
     Route: 042
     Dates: start: 20250429
  4. SOLU-CORTEF [Concomitant]
     Active Substance: HYDROCORTISONE SODIUM SUCCINATE
     Indication: Premedication
     Route: 042

REACTIONS (5)
  - Uveitis [Unknown]
  - Poor venous access [Unknown]
  - Infusion site hypersensitivity [Unknown]
  - Infusion site erythema [Unknown]
  - Off label use [Unknown]

NARRATIVE: CASE EVENT DATE: 20250429
